FAERS Safety Report 9785638 (Version 3)
Quarter: 2014Q1

REPORT INFORMATION
  Report Type: Spontaneous
  Country: FR (occurrence: FR)
  Receive Date: 20131227
  Receipt Date: 20140324
  Transmission Date: 20141002
  Serious: Yes (Death)
  Sender: FDA-Public Use
  Company Number: FR-SA-2013SA133532

PATIENT
  Age: 56 Year
  Sex: Male
  Weight: 47 kg

DRUGS (6)
  1. MYOZYME [Suspect]
     Indication: GLYCOGEN STORAGE DISEASE TYPE II
     Route: 042
     Dates: start: 20131203
  2. KEPPRA [Concomitant]
     Indication: EPILEPSY
  3. URBANYL [Concomitant]
     Indication: EPILEPSY
  4. EFFEXOR [Concomitant]
     Indication: DEPRESSION
  5. VFEND [Concomitant]
     Indication: ASPERGILLUS INFECTION
  6. TERCIAN [Concomitant]
     Indication: ANXIETY

REACTIONS (1)
  - Completed suicide [Fatal]
